FAERS Safety Report 14996774 (Version 2)
Quarter: 2018Q2

REPORT INFORMATION
  Report Type: Spontaneous
  Country: US (occurrence: US)
  Receive Date: 20180611
  Receipt Date: 20180627
  Transmission Date: 20180711
  Serious: Yes (Hospitalization)
  Sender: FDA-Public Use
  Company Number: US-JNJFOC-20180604376

PATIENT
  Age: 60 Year
  Sex: Male
  Weight: 77.11 kg

DRUGS (3)
  1. ASPIRIN. [Concomitant]
     Active Substance: ASPIRIN
     Indication: FACTOR V LEIDEN MUTATION
     Dosage: 2 TABLETS
     Route: 065
  2. SIMPONI [Suspect]
     Active Substance: GOLIMUMAB
     Indication: ANKYLOSING SPONDYLITIS
     Dosage: CERTAIN IF LATE 2016 OR EARLY 2017
     Route: 058
     Dates: end: 2018
  3. SIMPONI [Suspect]
     Active Substance: GOLIMUMAB
     Indication: ANKYLOSING SPONDYLITIS
     Route: 058
     Dates: start: 201804

REACTIONS (5)
  - Small intestinal obstruction [Recovered/Resolved]
  - Product use issue [Unknown]
  - Off label use [Unknown]
  - Abnormal loss of weight [Recovering/Resolving]
  - Abdominal adhesions [Recovered/Resolved]

NARRATIVE: CASE EVENT DATE: 2018
